FAERS Safety Report 8110247-9 (Version None)
Quarter: 2012Q1

REPORT INFORMATION
  Report Type: 
  Country: None (occurrence: None)
  Receive Date: 20120202
  Receipt Date: 20120127
  Transmission Date: 20120608
  Serious: No
  Sender: FDA-Public Use
  Company Number: US-AMGEN-USASP2011001760

PATIENT
  Age: 52 Year
  Sex: Female

DRUGS (8)
  1. ENBREL [Suspect]
     Indication: PSORIASIS
     Dosage: 50 MG, QWK
     Route: 058
  2. HYDROCORTISONE [Concomitant]
     Dosage: 2.5 %, UNK
     Route: 061
  3. DOVONEX [Concomitant]
     Dosage: 0.005 %, UNK
     Route: 061
  4. INDOMETHACIN [Concomitant]
     Dosage: 2 MG, QD
     Route: 048
  5. LOSARTAN POTASSIUM [Concomitant]
     Dosage: 2 MG, QD
     Route: 048
  6. DIPHENHYDRAMINE HCL [Concomitant]
     Dosage: 1 MG, QD
     Route: 048
  7. OMEPRAZOLE [Concomitant]
     Dosage: 1 MG, QD
     Route: 048
  8. COLACE [Concomitant]
     Dosage: 2 MG, QD
     Route: 048

REACTIONS (2)
  - GASTRIC DISORDER [None]
  - INFECTION [None]
